FAERS Safety Report 15280161 (Version 1)
Quarter: 2018Q4

REPORT INFORMATION
  Report Type: Spontaneous
  Country: US (occurrence: US)
  Receive Date: 20180815
  Receipt Date: 20180815
  Transmission Date: 20190204
  Serious: No
  Sender: FDA-Public Use
  Company Number: US-SA-2018SA222726

PATIENT
  Sex: Female

DRUGS (1)
  1. CORTIZONE 10 INTENSIVE HEALING FEMININE ITCH RELIEF [Suspect]
     Active Substance: HYDROCORTISONE
     Dosage: UNK, 1 OZ
     Route: 003
     Dates: start: 20180807

REACTIONS (1)
  - Burning sensation [Unknown]

NARRATIVE: CASE EVENT DATE: 20180807
